FAERS Safety Report 17999745 (Version 1)
Quarter: 2020Q3

REPORT INFORMATION
  Report Type: Spontaneous
  Country: US (occurrence: US)
  Receive Date: 20200709
  Receipt Date: 20200709
  Transmission Date: 20201103
  Serious: Yes (Other)
  Sender: FDA-Public Use
  Company Number: US-BRISTOL-MYERS SQUIBB COMPANY-BMS-2020-052453

PATIENT
  Sex: Male
  Weight: 75.3 kg

DRUGS (21)
  1. REVLIMID [Concomitant]
     Active Substance: LENALIDOMIDE
     Dosage: 15 MILLIGRAM, 21 DAYS ON, 7 DAYS OFF
     Route: 048
     Dates: start: 20140623, end: 20150617
  2. REVLIMID [Concomitant]
     Active Substance: LENALIDOMIDE
     Dosage: 25 MILLIGRAM, 21 DAYS ON, 7 DAYS OFF
     Route: 048
     Dates: start: 20150617, end: 20170927
  3. DECADRON [Concomitant]
     Active Substance: DEXAMETHASONE
     Dosage: 8 MILLIGRAM, QWK
     Route: 042
     Dates: start: 20171003, end: 20171003
  4. DECADRON [Concomitant]
     Active Substance: DEXAMETHASONE
     Dosage: 40 MG QD2 PER WEEK 3 WEEKS 1 WEEK OFF
     Route: 042
     Dates: start: 20200415, end: 20200513
  5. REVLIMID [Concomitant]
     Active Substance: LENALIDOMIDE
     Dosage: 25 MILLIGRAM, 21 DAYS ON, 7 DAYS OFF
     Route: 048
     Dates: start: 20171003, end: 20171127
  6. VELCADE [Concomitant]
     Active Substance: BORTEZOMIB
     Dosage: 1.3 MILLIGRAM/SQ. METER, 1X WEEKLY, NO REST PERIOD: DAY 1 Q7D
     Route: 058
     Dates: start: 20131203, end: 20131213
  7. REVLIMID [Concomitant]
     Active Substance: LENALIDOMIDE
     Indication: PLASMA CELL MYELOMA
     Dosage: 25 MILLIGRAM, 14 DAYS ON, 7 DAYS OFF
     Route: 048
     Dates: start: 20110616, end: 20110818
  8. REVLIMID [Concomitant]
     Active Substance: LENALIDOMIDE
     Dosage: 15 MILLIGRAM, 28 DAYS (CONTINUOUS)
     Route: 048
     Dates: start: 20131101, end: 20140528
  9. ELOTUZUMAB. [Suspect]
     Active Substance: ELOTUZUMAB
     Indication: PLASMA CELL MYELOMA
     Dosage: 10 MILLIGRAM/KILOGRAM, QWK
     Route: 042
     Dates: start: 20171003, end: 20171127
  10. DECADRON [Concomitant]
     Active Substance: DEXAMETHASONE
     Dosage: 4 MILLIGRAM, QWK
     Route: 048
     Dates: start: 20131101, end: 20170927
  11. DECADRON [Concomitant]
     Active Substance: DEXAMETHASONE
     Dosage: 10 TABLETS (40 MG) BY MOUTH ONCE A WEEK FOR 4 DOSE
     Route: 048
     Dates: start: 20181101, end: 20190115
  12. REVLIMID [Concomitant]
     Active Substance: LENALIDOMIDE
     Dosage: 10 MILLIGRAM, 28 DAYS (CONTINUOUS)
     Route: 048
     Dates: start: 20111215, end: 20120611
  13. VELCADE [Concomitant]
     Active Substance: BORTEZOMIB
     Dosage: 1.3 MILLIGRAM/SQ. METER, 1X WEEKLY, NO REST PERIOD: DAY 1 Q7D
     Route: 058
     Dates: start: 20131101, end: 20131111
  14. VELCADE [Concomitant]
     Active Substance: BORTEZOMIB
     Dosage: 1.3 MILLIGRAM/SQ. METER, 1X WEEKLY, NO REST PERIOD: DAY 1 Q7D
     Route: 058
     Dates: start: 20150622, end: 20170927
  15. ALKERAN [Concomitant]
     Active Substance: MELPHALAN
     Indication: PLASMA CELL MYELOMA
     Dosage: 200 MILLIGRAM/SQ. METER, ONE TIME DOSE
     Route: 042
     Dates: start: 20110913, end: 20110913
  16. VELCADE [Concomitant]
     Active Substance: BORTEZOMIB
     Indication: PLASMA CELL MYELOMA
     Dosage: 1.3 MILLIGRAM/SQ. METER, 2XWEEKLY, DAYS 1 AND 4 Q7D, 1WK OFF Q14D
     Route: 042
     Dates: start: 20110616, end: 20110818
  17. DECADRON [Concomitant]
     Active Substance: DEXAMETHASONE
     Indication: PLASMA CELL MYELOMA
     Dosage: 40 MG, DAY OF AND AFTER VELCADE
     Route: 048
     Dates: start: 20110616, end: 20110818
  18. DECADRON [Concomitant]
     Active Substance: DEXAMETHASONE
     Dosage: 40 MG, 1, 8, 15 AND 22
     Route: 048
     Dates: start: 20190221
  19. DECADRON [Concomitant]
     Active Substance: DEXAMETHASONE
     Dosage: 20 MG, 1 TO 8 CYCLES (28 DAYS /CYCLE)
     Route: 042
     Dates: start: 20200615
  20. REVLIMID [Concomitant]
     Active Substance: LENALIDOMIDE
     Dosage: 15 MILLIGRAM, 28 DAYS (CONTINUOUS)
     Route: 048
     Dates: start: 20120611, end: 20131028
  21. VELCADE [Concomitant]
     Active Substance: BORTEZOMIB
     Dosage: 1.3 MILLIGRAM/SQ. METER, 1X WEEKLY, NO REST PERIOD: DAY 1 Q7D
     Route: 058
     Dates: start: 20140117, end: 20140204

REACTIONS (1)
  - Drug resistance [Recovered/Resolved]
